FAERS Safety Report 4860989-3 (Version None)
Quarter: 2005Q4

REPORT INFORMATION
  Report Type: 
  Country: None (occurrence: None)
  Receive Date: 20051220
  Receipt Date: 20051213
  Transmission Date: 20060501
  Serious: Yes (Death, Other)
  Sender: FDA-Public Use
  Company Number: FR-BRISTOL-MYERS SQUIBB COMPANY-13216486

PATIENT
  Age: 59 Year
  Sex: Male
  Weight: 73 kg

DRUGS (5)
  1. REYATAZ [Suspect]
     Indication: HIV INFECTION
     Route: 048
     Dates: start: 20050104, end: 20050315
  2. VIDEX EC [Suspect]
     Route: 048
     Dates: start: 20050104, end: 20050315
  3. NORVIR [Suspect]
     Dates: start: 20050104, end: 20050315
  4. VIREAD [Suspect]
     Dates: start: 20050104, end: 20050315
  5. KALETRA [Concomitant]

REACTIONS (2)
  - JAUNDICE [None]
  - LYMPHOMA [None]
